FAERS Safety Report 11868034 (Version 2)
Quarter: 2016Q1

REPORT INFORMATION
  Report Type: Report from Study
  Country: DO (occurrence: DO)
  Receive Date: 20151224
  Receipt Date: 20160217
  Transmission Date: 20160526
  Serious: Yes (Hospitalization)
  Sender: FDA-Public Use
  Company Number: DO-ABBVIE-15K-279-1524270-00

PATIENT
  Sex: Male

DRUGS (3)
  1. HUMIRA [Suspect]
     Active Substance: ADALIMUMAB
     Indication: CROHN^S DISEASE
     Route: 058
     Dates: start: 201411, end: 201512
  2. PENTASA [Concomitant]
     Active Substance: MESALAMINE
     Indication: PRODUCT USED FOR UNKNOWN INDICATION
  3. HUMIRA [Suspect]
     Active Substance: ADALIMUMAB
     Route: 058
     Dates: start: 201601

REACTIONS (30)
  - Decreased appetite [Recovering/Resolving]
  - Weight decreased [Recovering/Resolving]
  - General physical health deterioration [Recovering/Resolving]
  - Nausea [Recovering/Resolving]
  - Pyrexia [Recovering/Resolving]
  - Vitamin D decreased [Unknown]
  - Haematocrit decreased [Unknown]
  - Albumin globulin ratio decreased [Unknown]
  - Red blood cells urine [Unknown]
  - Mean cell haemoglobin concentration decreased [Unknown]
  - C-reactive protein increased [Unknown]
  - Urine abnormality [Unknown]
  - Haemoglobin decreased [Unknown]
  - High density lipoprotein decreased [Unknown]
  - Occult blood positive [Unknown]
  - Bacterial test positive [Unknown]
  - Urinary sediment present [Unknown]
  - Malnutrition [Recovering/Resolving]
  - Blood albumin decreased [Unknown]
  - Protein urine present [Unknown]
  - Red blood cell count decreased [Recovering/Resolving]
  - Red cell distribution width increased [Unknown]
  - White blood cells stool positive [Unknown]
  - Melaena [Recovering/Resolving]
  - Toxoplasma serology positive [Unknown]
  - Abdominal pain [Recovering/Resolving]
  - Mean cell haemoglobin decreased [Unknown]
  - Platelet count increased [Unknown]
  - White blood cells urine positive [Unknown]
  - Herpes simplex test positive [Unknown]
